FAERS Safety Report 4465738-9 (Version None)
Quarter: 2004Q3

REPORT INFORMATION
  Report Type: 
  Country: None (occurrence: None)
  Receive Date: 20040929
  Receipt Date: 20040929
  Transmission Date: 20050211
  Serious: Yes (Death, Hospitalization)
  Sender: FDA-Public Use
  Company Number: None

PATIENT
  Age: 60 Year
  Sex: Male
  Weight: 91 kg

DRUGS (8)
  1. WARFARIN SODIUM [Suspect]
     Indication: INTRACARDIAC THROMBUS
     Dosage: 5 MG DAILY ORAL
     Route: 048
     Dates: start: 20030203, end: 20040218
  2. POTASSIUM CHLORIDE [Suspect]
     Indication: CARDIAC FAILURE CONGESTIVE
     Dosage: 8 MEQ BID ORAL
     Route: 048
     Dates: start: 20030306, end: 20040218
  3. DIGOXIN [Concomitant]
  4. LASIX [Concomitant]
  5. GEMFIBROZIL [Concomitant]
  6. COREG [Concomitant]
  7. TRAZODONE HCL [Concomitant]
  8. RABEPRAZOLE SODIUM [Concomitant]

REACTIONS (8)
  - ASTHENIA [None]
  - HYPERKALAEMIA [None]
  - INTERNATIONAL NORMALISED RATIO INCREASED [None]
  - MOANING [None]
  - NAUSEA [None]
  - PAIN [None]
  - URINARY INCONTINENCE [None]
  - VOMITING [None]
